FAERS Safety Report 19994475 (Version 1)
Quarter: 2021Q4

REPORT INFORMATION
  Report Type: Spontaneous
  Country: US (occurrence: US)
  Receive Date: 20211025
  Receipt Date: 20211025
  Transmission Date: 20220303
  Serious: Yes (Other)
  Sender: FDA-Public Use
  Company Number: US-GLAXOSMITHKLINE-US2021GSK221167

PATIENT
  Sex: Male

DRUGS (7)
  1. ZANTAC [Suspect]
     Active Substance: RANITIDINE HYDROCHLORIDE
     Dosage: UNKNOWN AT THIS TIME BOTH
     Route: 065
     Dates: start: 198904, end: 201904
  2. ZANTAC [Suspect]
     Active Substance: RANITIDINE HYDROCHLORIDE
     Dosage: UNKNOWN AT THIS TIME BOTH
     Route: 065
     Dates: start: 198904, end: 201904
  3. ZANTAC [Suspect]
     Active Substance: RANITIDINE HYDROCHLORIDE
     Dosage: UNKNOWN AT THIS TIME BOTH
     Route: 065
     Dates: start: 198904, end: 201904
  4. RANITIDINE [Suspect]
     Active Substance: RANITIDINE
     Dosage: UNKNOWN AT THIS TIME BOTH
     Route: 065
     Dates: start: 198904, end: 201904
  5. RANITIDINE [Suspect]
     Active Substance: RANITIDINE
     Dosage: UNKNOWN AT THIS TIME BOTH
     Route: 065
     Dates: start: 198904, end: 201904
  6. RANITIDINE [Suspect]
     Active Substance: RANITIDINE
     Dosage: UNKNOWN AT THIS TIME BOTH
     Route: 065
     Dates: start: 198904, end: 201904
  7. RANITIDINE [Suspect]
     Active Substance: RANITIDINE
     Dosage: UNKNOWN AT THIS TIME BOTH
     Route: 065
     Dates: start: 198904, end: 201904

REACTIONS (2)
  - Lung neoplasm malignant [Unknown]
  - Pancreatic carcinoma [Unknown]
